FAERS Safety Report 24107601 (Version 3)
Quarter: 2024Q4

REPORT INFORMATION
  Report Type: Spontaneous
  Country: BR (occurrence: BR)
  Receive Date: 20240718
  Receipt Date: 20241003
  Transmission Date: 20250115
  Serious: Yes (Other)
  Sender: SANDOZ
  Company Number: BR-SANDOZ-SDZ2024BR065667

PATIENT
  Age: 86 Year
  Sex: Male

DRUGS (1)
  1. QUETIAPINE FUMARATE [Suspect]
     Active Substance: QUETIAPINE FUMARATE
     Indication: Product used for unknown indication
     Dosage: 25 MG 60 TABLETS
     Route: 065

REACTIONS (5)
  - Hallucination [Unknown]
  - Insomnia [Unknown]
  - Disorientation [Unknown]
  - Confusional state [Unknown]
  - Discomfort [Not Recovered/Not Resolved]
